FAERS Safety Report 19439221 (Version 2)
Quarter: 2021Q2

REPORT INFORMATION
  Report Type: Spontaneous
  Country: LK (occurrence: LK)
  Receive Date: 20210619
  Receipt Date: 20210630
  Transmission Date: 20210717
  Serious: Yes (Death, Life-Threatening, Hospitalization, Other)
  Sender: FDA-Public Use
  Company Number: LK-ACCORD-228329

PATIENT
  Age: 56 Year
  Sex: Male
  Weight: 47 kg

DRUGS (7)
  1. ETOPOSIDE. [Suspect]
     Active Substance: ETOPOSIDE
     Indication: SUPERIOR VENA CAVA SYNDROME
     Dosage: (120 MG DAILY GIVEN INTRAVENOUSLY FOR 5 DAYS)
     Route: 042
     Dates: start: 2020, end: 2020
  2. SPIRONOLACTONE. [Concomitant]
     Active Substance: SPIRONOLACTONE
     Indication: HYPOKALAEMIA
     Dates: start: 2020
  3. POTASSIUM CHLORIDE. [Concomitant]
     Active Substance: POTASSIUM CHLORIDE
     Indication: HYPOKALAEMIA
     Route: 042
     Dates: start: 2020
  4. CISPLATIN. [Suspect]
     Active Substance: CISPLATIN
     Indication: SMALL CELL LUNG CANCER METASTATIC
     Dosage: (70 MG GIVEN INTRAVENOUSLY ON THE DAY ONE)
     Route: 042
  5. KETOCONAZOLE. [Concomitant]
     Active Substance: KETOCONAZOLE
     Dates: start: 2020
  6. ETOPOSIDE. [Suspect]
     Active Substance: ETOPOSIDE
     Indication: SMALL CELL LUNG CANCER METASTATIC
     Dosage: (120 MG DAILY GIVEN INTRAVENOUSLY FOR 5 DAYS)
     Route: 042
  7. CISPLATIN. [Suspect]
     Active Substance: CISPLATIN
     Indication: SUPERIOR VENA CAVA SYNDROME
     Dosage: (70 MG GIVEN INTRAVENOUSLY ON THE DAY ONE)
     Route: 042
     Dates: start: 2020, end: 2020

REACTIONS (3)
  - Pneumonia [Fatal]
  - Respiratory arrest [Fatal]
  - Neutropenia [Fatal]

NARRATIVE: CASE EVENT DATE: 2020
